FAERS Safety Report 11502250 (Version 2)
Quarter: 2015Q3

REPORT INFORMATION
  Report Type: Report from Study
  Country: BE (occurrence: BE)
  Receive Date: 20150914
  Receipt Date: 20150917
  Transmission Date: 20151125
  Serious: Yes (Death)
  Sender: FDA-Public Use
  Company Number: PHHY2015BE110591

PATIENT
  Age: 61 Year
  Sex: Male

DRUGS (1)
  1. SANDOSTATIN LAR DEPOT [Suspect]
     Active Substance: OCTREOTIDE ACETATE
     Indication: NEUROENDOCRINE TUMOUR
     Dosage: 30 MG, QMO
     Route: 030
     Dates: end: 20150904

REACTIONS (1)
  - Death [Fatal]

NARRATIVE: CASE EVENT DATE: 20150908
